FAERS Safety Report 5981724-1 (Version None)
Quarter: 2008Q4

REPORT INFORMATION
  Report Type: 
  Country: None (occurrence: None)
  Receive Date: 20081205
  Receipt Date: 20081201
  Transmission Date: 20090506
  Serious: Yes (Disabling)
  Sender: FDA-Public Use
  Company Number: JP-B.I. PHARMACEUTICALS,INC./RIDGEFIELD-2008-BP-16688YA

PATIENT
  Sex: Male
  Weight: 70 kg

DRUGS (2)
  1. TAMSULOSIN HCL [Suspect]
     Indication: BENIGN PROSTATIC HYPERPLASIA
     Dosage: .2MG
     Route: 048
     Dates: start: 20081014, end: 20081021
  2. TAMSULOSIN HCL [Suspect]
     Indication: NOCTURIA

REACTIONS (4)
  - ANOREXIA [None]
  - GAIT DISTURBANCE [None]
  - HYPOPHAGIA [None]
  - TREMOR [None]
